FAERS Safety Report 5255330-0 (Version None)
Quarter: 2007Q1

REPORT INFORMATION
  Report Type: 
  Country: None (occurrence: None)
  Receive Date: 20070305
  Receipt Date: 20070226
  Transmission Date: 20070707
  Serious: Yes (Hospitalization)
  Sender: FDA-Public Use
  Company Number: FR-GLAXOSMITHKLINE-B0460371A

PATIENT
  Age: 79 Year
  Sex: Female

DRUGS (2)
  1. AUGMENTIN [Suspect]
     Route: 048
     Dates: start: 20070109, end: 20070117
  2. EXOMUC [Suspect]
     Route: 048
     Dates: start: 20070109, end: 20070117

REACTIONS (7)
  - ERYTHEMA [None]
  - IMPETIGO [None]
  - LIP EROSION [None]
  - RASH [None]
  - RASH MACULAR [None]
  - SKIN DISORDER [None]
  - SKIN EXFOLIATION [None]
